FAERS Safety Report 4565873-0 (Version None)
Quarter: 2005Q1

REPORT INFORMATION
  Report Type: 
  Country: None (occurrence: None)
  Receive Date: 20050131
  Receipt Date: 20050119
  Transmission Date: 20050727
  Serious: Yes (Other)
  Sender: FDA-Public Use
  Company Number: BEWYE351919JAN05

PATIENT
  Sex: Male

DRUGS (2)
  1. ENBREL [Suspect]
     Indication: DRUG USE FOR UNKNOWN INDICATION
     Dosage: 25 MG 2 TIMES A WEEK
     Route: 058
     Dates: start: 20040301, end: 20040901
  2. METHYLPREDNISOLONE [Concomitant]
     Route: 048
     Dates: start: 20030101

REACTIONS (2)
  - C-REACTIVE PROTEIN INCREASED [None]
  - COLITIS ULCERATIVE [None]
